FAERS Safety Report 5659968-8 (Version None)
Quarter: 2008Q1

REPORT INFORMATION
  Report Type: 
  Country: None (occurrence: None)
  Receive Date: 20080311
  Receipt Date: 20080225
  Transmission Date: 20080703
  Serious: Yes (Hospitalization)
  Sender: FDA-Public Use
  Company Number: FR-ROCHE-534820

PATIENT
  Age: 58 Year
  Sex: Male
  Weight: 105 kg

DRUGS (6)
  1. RIBAVIRIN [Suspect]
     Dosage: DOSE BLINDED.
     Route: 048
     Dates: start: 20071022, end: 20071203
  2. PEG-INTERFERON ALFA 2A (RO 25-8310) [Suspect]
     Dosage: BLINDED DOSE
     Route: 058
     Dates: start: 20071022, end: 20071203
  3. AMLODIPINE [Concomitant]
     Dates: start: 20060920
  4. PRAZEPAM [Concomitant]
     Dates: start: 20060920
  5. ZOLPIDEM [Concomitant]
     Dates: start: 20060920
  6. LEVOCETIRIZINE [Concomitant]
     Dates: start: 20060920

REACTIONS (1)
  - SYNCOPE [None]
